FAERS Safety Report 7810699-5 (Version None)
Quarter: 2011Q4

REPORT INFORMATION
  Report Type: 
  Country: None (occurrence: None)
  Receive Date: 20111013
  Receipt Date: 20111005
  Transmission Date: 20120403
  Serious: Yes (Other)
  Sender: FDA-Public Use
  Company Number: IT-BRISTOL-MYERS SQUIBB COMPANY-16146128

PATIENT
  Age: 12 Year
  Sex: Female

DRUGS (1)
  1. DASATINIB [Suspect]
     Indication: CHRONIC MYELOID LEUKAEMIA
     Dosage: 10MAR10-20MG TO 40MG 31MAR11-40MG/DAY 4MAY10-60MG 8JUN10-80MG 5JUL10-80-60MG

REACTIONS (2)
  - NEPHROTIC SYNDROME [None]
  - HYPERTENSIVE ENCEPHALOPATHY [None]
